FAERS Safety Report 9409916 (Version 2)
Quarter: 2013Q3

REPORT INFORMATION
  Report Type: Spontaneous
  Country: US (occurrence: US)
  Receive Date: 20130719
  Receipt Date: 20130807
  Transmission Date: 20140515
  Serious: No
  Sender: FDA-Public Use
  Company Number: US-009507513-1307USA010078

PATIENT
  Age: 75 Year
  Sex: Female

DRUGS (3)
  1. MIRALAX [Suspect]
     Indication: GASTROINTESTINAL DISORDER
     Dosage: 17 G, UNKNOWN
     Route: 048
  2. MIRALAX [Suspect]
     Indication: MEDICAL OBSERVATION
  3. MIRALAX [Suspect]
     Indication: GASTROINTESTINAL MOTILITY DISORDER

REACTIONS (4)
  - Intestinal obstruction [Unknown]
  - Prescribed overdose [Unknown]
  - Therapeutic response unexpected [Unknown]
  - Off label use [Unknown]
